FAERS Safety Report 16100659 (Version 1)
Quarter: 2019Q1

REPORT INFORMATION
  Report Type: Report from Study
  Country: US (occurrence: US)
  Receive Date: 20190321
  Receipt Date: 20190321
  Transmission Date: 20190418
  Serious: Yes (Other)
  Sender: FDA-Public Use
  Company Number: US-TEVA-2019-US-1025259

PATIENT
  Age: 19 Year
  Sex: Female

DRUGS (1)
  1. COPAXONE [Suspect]
     Active Substance: GLATIRAMER ACETATE
     Indication: MULTIPLE SCLEROSIS
     Route: 058
     Dates: start: 20181124, end: 20190130

REACTIONS (7)
  - Pelvic pain [Unknown]
  - Drug hypersensitivity [Unknown]
  - Throat tightness [Unknown]
  - Ovarian cyst ruptured [Unknown]
  - Loss of consciousness [Unknown]
  - Ovarian haemorrhage [Unknown]
  - Dyspnoea [Unknown]

NARRATIVE: CASE EVENT DATE: 20190130
